FAERS Safety Report 17398645 (Version 2)
Quarter: 2020Q1

REPORT INFORMATION
  Report Type: Spontaneous
  Country: US (occurrence: US)
  Receive Date: 20200210
  Receipt Date: 20200217
  Transmission Date: 20200409
  Serious: No
  Sender: FDA-Public Use
  Company Number: US-BAYER-2020-023211

PATIENT
  Age: 17 Year
  Sex: Female

DRUGS (1)
  1. MIRENA [Suspect]
     Active Substance: LEVONORGESTREL
     Indication: CONTRACEPTION
     Dosage: 20 ?G PER DAY CONTINUOUSLY
     Route: 015
     Dates: start: 20200207, end: 20200207

REACTIONS (4)
  - Device deployment issue [None]
  - Complication of device insertion [None]
  - Device use issue [None]
  - Suspected product quality issue [None]

NARRATIVE: CASE EVENT DATE: 20200207
